FAERS Safety Report 10743739 (Version 1)
Quarter: 2015Q1

REPORT INFORMATION
  Report Type: Spontaneous
  Country: DE (occurrence: DE)
  Receive Date: 20150128
  Receipt Date: 20150128
  Transmission Date: 20150721
  Serious: Yes (Death, Hospitalization)
  Sender: FDA-Public Use
  Company Number: DE-AMGEN-DEUSP2015006200

PATIENT
  Age: 86 Year
  Sex: Female

DRUGS (1)
  1. PROLIA [Suspect]
     Active Substance: DENOSUMAB
     Indication: OSTEOPOROSIS
     Dosage: 60 MG, UNK
     Route: 065
     Dates: start: 20140804

REACTIONS (9)
  - Pneumonia [Fatal]
  - Pleural effusion [Fatal]
  - Hypocalcaemia [Unknown]
  - Shock [Unknown]
  - Systemic lupus erythematosus [Unknown]
  - General physical condition normal [Unknown]
  - Acute kidney injury [Unknown]
  - Right ventricular failure [Fatal]
  - Dehydration [Unknown]

NARRATIVE: CASE EVENT DATE: 20140809
